FAERS Safety Report 4759665-7 (Version None)
Quarter: 2005Q3

REPORT INFORMATION
  Report Type: 
  Country: None (occurrence: None)
  Receive Date: 20050901
  Receipt Date: 20050602
  Transmission Date: 20060218
  Serious: Yes (Hospitalization)
  Sender: FDA-Public Use
  Company Number: US-MERCK-0506USA00857

PATIENT
  Age: 58 Year
  Sex: Female
  Weight: 75 kg

DRUGS (3)
  1. VIOXX [Suspect]
     Indication: ARTHRITIS
     Route: 048
     Dates: start: 20030318, end: 20030520
  2. ASPIRIN [Concomitant]
     Route: 065
  3. PLAVIX [Concomitant]
     Route: 065

REACTIONS (5)
  - CARDIAC DISORDER [None]
  - CONDITION AGGRAVATED [None]
  - DEPRESSION [None]
  - HERPES ZOSTER [None]
  - MYOCARDIAL INFARCTION [None]
